FAERS Safety Report 8058033 (Version 2)
Quarter: 2012Q4

REPORT INFORMATION
  Report Type: 
  Country: DE (occurrence: DE)
  Receive Date: 20110728
  Receipt Date: 20121004
  Transmission Date: 20130627
  Serious: Yes (Death, Other)
  Sender: FDA-Public Use
  Company Number: DE-RANBAXY-2011RR-46272

PATIENT
  Age: 16 Year

DRUGS (4)
  1. ASPIRIN [Suspect]
     Indication: ALLERGY TEST
     Route: 048
  2. DICLOFENAC [Suspect]
     Indication: ALLERGY TEST
     Route: 048
  3. IBUPROFEN [Suspect]
     Indication: ALLERGY TEST
     Route: 048
  4. PARACETAMOL [Concomitant]
     Indication: ALLERGY TEST
     Route: 048

REACTIONS (3)
  - Drug hypersensitivity [Recovering/Resolving]
  - Urticaria [Recovering/Resolving]
  - Angioedema [Recovering/Resolving]
